FAERS Safety Report 7194280-X (Version None)
Quarter: 2010Q4

REPORT INFORMATION
  Report Type: 
  Country: None (occurrence: None)
  Receive Date: 20101223
  Receipt Date: 20101217
  Transmission Date: 20110411
  Serious: Yes (Hospitalization)
  Sender: FDA-Public Use
  Company Number: PHHO2010US19067

PATIENT
  Sex: Female
  Weight: 98 kg

DRUGS (2)
  1. CERTICAN [Suspect]
     Indication: RENAL TRANSPLANT
     Dosage: 0.75 MG, BID
     Route: 048
     Dates: start: 20100909
  2. PROGRAF [Concomitant]
     Indication: RENAL TRANSPLANT
     Dosage: 1 MG, BID
     Route: 048
     Dates: start: 20100909, end: 20101215

REACTIONS (3)
  - BLOOD CREATININE INCREASED [None]
  - RENAL CYST [None]
  - RENAL LYMPHOCELE [None]
